FAERS Safety Report 5470611-3 (Version None)
Quarter: 2007Q3

REPORT INFORMATION
  Report Type: 
  Country: None (occurrence: None)
  Receive Date: 20070928
  Receipt Date: 20070919
  Transmission Date: 20080115
  Serious: Yes (Other)
  Sender: FDA-Public Use
  Company Number: US-KINGPHARMUSA00001-K200701211

PATIENT

DRUGS (14)
  1. ALTACE [Suspect]
     Indication: BLOOD PRESSURE MANAGEMENT
     Dosage: 5 MG, QD
  2. VALOID                             /00014901/ [Suspect]
     Indication: NAUSEA
     Dosage: 50 MG, SINGLE
     Route: 042
     Dates: start: 20070619, end: 20070619
  3. AMITRIPTYLINE HCL [Concomitant]
     Indication: PAIN MANAGEMENT
     Dosage: 10 MG, UNK
  4. CALCIUM ACETATE [Concomitant]
     Dosage: 3 G, UNK
  5. DIAZEPAM [Concomitant]
     Indication: ANXIETY
     Dosage: 6 MG, UNK
  6. FEMULEN [Concomitant]
     Indication: CONTRACEPTION
     Dosage: 50 MG/KG, UNK
  7. FUROSEMIDE [Concomitant]
     Indication: FLUID RETENTION
     Dosage: 250 MG, UNK
  8. LANSOPRAZOLE [Concomitant]
     Indication: THERAPEUTIC PROCEDURE
     Dosage: 15 MG, UNK
  9. OXYCONTIN [Concomitant]
     Dosage: 40 MG, UNK
  10. PARACETAMOL [Concomitant]
     Indication: PAIN MANAGEMENT
     Dosage: 4 G, UNK
     Dates: start: 20070814
  11. PREGABALIN [Concomitant]
     Indication: PAIN MANAGEMENT
     Dosage: 50 MG, UNK
  12. QUININE SULFATE [Concomitant]
     Indication: MUSCLE SPASMS
     Dosage: 200 MG, UNK
  13. SALBUTAMOL [Concomitant]
     Indication: ASTHMA
  14. SEVELAMER [Concomitant]
     Dosage: 2400 MG, UNK

REACTIONS (7)
  - ERYTHEMA [None]
  - FLUSHING [None]
  - HYPOTENSION [None]
  - MALAISE [None]
  - MUSCLE SPASMS [None]
  - MUSCLE TWITCHING [None]
  - NAUSEA [None]
